FAERS Safety Report 5742057-1 (Version None)
Quarter: 2008Q2

REPORT INFORMATION
  Report Type: 
  Country: None (occurrence: None)
  Receive Date: 20080519
  Receipt Date: 20080513
  Transmission Date: 20081010
  Serious: Yes (Other)
  Sender: FDA-Public Use
  Company Number: US-MERCK-0804USA01707

PATIENT
  Age: 42 Year
  Sex: Female
  Weight: 72 kg

DRUGS (3)
  1. SINGULAIR [Suspect]
     Indication: HYPERSENSITIVITY
     Route: 048
     Dates: start: 20060101, end: 20080301
  2. LEXAPRO [Concomitant]
     Route: 065
  3. VERAMYST [Concomitant]
     Route: 065

REACTIONS (4)
  - DEPRESSION [None]
  - GOITRE [None]
  - SUICIDAL IDEATION [None]
  - VIOLENCE-RELATED SYMPTOM [None]
